FAERS Safety Report 8743433 (Version 2)
Quarter: 2012Q4

REPORT INFORMATION
  Report Type: Report from Study
  Country: US (occurrence: US)
  Receive Date: 20120824
  Receipt Date: 20121109
  Transmission Date: 20130627
  Serious: Yes (Other)
  Sender: FDA-Public Use
  Company Number: US-JNJFOC-20120809315

PATIENT
  Sex: Female
  Weight: 79.38 kg

DRUGS (13)
  1. REMICADE [Suspect]
     Indication: RHEUMATOID ARTHRITIS
     Dosage: 6 vials
     Route: 042
     Dates: start: 201108
  2. REMICADE [Suspect]
     Indication: RHEUMATOID ARTHRITIS
     Route: 042
     Dates: start: 201208
  3. CYMBALTA [Concomitant]
     Indication: DEPRESSION
     Route: 048
     Dates: start: 201101
  4. FOLIC ACID [Concomitant]
     Route: 048
     Dates: start: 201108
  5. LEVOTHYROXINE [Concomitant]
     Indication: THYROID DISORDER
     Route: 048
  6. LIPITOR [Concomitant]
     Indication: BLOOD CHOLESTEROL
     Route: 048
  7. UNKNOWN MEDICATION [Concomitant]
     Indication: FIBROMYALGIA
     Route: 048
     Dates: end: 201202
  8. SULINDAC [Concomitant]
     Indication: SWELLING
     Route: 065
  9. LYRICA [Concomitant]
     Indication: PAIN
     Route: 065
  10. LYRICA [Concomitant]
     Indication: SWELLING
     Route: 065
  11. LAMOTRIGINE [Concomitant]
     Indication: DEPRESSION
     Route: 065
  12. HYDROCODONE [Concomitant]
     Indication: PAIN
     Route: 065
  13. METHOTREXATE [Concomitant]
     Route: 065

REACTIONS (5)
  - Depression [Unknown]
  - Fatigue [Not Recovered/Not Resolved]
  - Inflammation [Unknown]
  - Oedema peripheral [Unknown]
  - Pain [Recovering/Resolving]
